FAERS Safety Report 23254223 (Version 3)
Quarter: 2024Q2

REPORT INFORMATION
  Report Type: Spontaneous
  Country: KR (occurrence: KR)
  Receive Date: 20231202
  Receipt Date: 20240508
  Transmission Date: 20240716
  Serious: Yes (Hospitalization)
  Sender: FDA-Public Use
  Company Number: KR-Accord-392402

PATIENT
  Age: 61 Year
  Sex: Male
  Weight: 73.7 kg

DRUGS (37)
  1. FLUOROURACIL [Suspect]
     Active Substance: FLUOROURACIL
     Indication: Squamous cell carcinoma of head and neck
     Dosage: C1D1: CONTINUOUS INFUSION FOR 4 DAYS ON DAYS 1,2,3,4 OF EVERY 3 WEEKS CYCLE
     Route: 042
     Dates: start: 20230925, end: 20230929
  2. CARBOPLATIN [Suspect]
     Active Substance: CARBOPLATIN
     Indication: Squamous cell carcinoma of head and neck
  3. CISPLATIN [Suspect]
     Active Substance: CISPLATIN
     Indication: Squamous cell carcinoma of head and neck
     Dosage: C1D1-C3D1
     Route: 042
     Dates: start: 20230925, end: 20231107
  4. PEMBROLIZUMAB [Concomitant]
     Active Substance: PEMBROLIZUMAB
     Indication: Squamous cell carcinoma of head and neck
     Dosage: C1D1-C3D1
     Route: 042
     Dates: start: 20230925
  5. FOSAPREPITANT [Concomitant]
     Active Substance: FOSAPREPITANT
     Dates: start: 20230925
  6. DEXAMETHASONE [Concomitant]
     Active Substance: DEXAMETHASONE
     Dates: start: 20230925
  7. ILAPRAZOLE [Concomitant]
     Active Substance: ILAPRAZOLE
     Dates: start: 20230904
  8. HEDERA HELIX [Concomitant]
     Active Substance: HEDERA HELIX FLOWERING TWIG\HERBALS
     Dates: start: 20230905
  9. SODIUM BICARBONATE [Concomitant]
     Active Substance: SODIUM BICARBONATE
     Dates: start: 20230925
  10. METOCLOPRAMIDE HYDROCHLORIDE [Concomitant]
     Active Substance: METOCLOPRAMIDE HYDROCHLORIDE
     Dates: start: 20230925
  11. AMCILLIN [Concomitant]
     Dates: start: 20230926
  12. LACTULOSE [Concomitant]
     Active Substance: LACTULOSE
     Dates: start: 20230926
  13. MONTMORILLONITE [Concomitant]
     Active Substance: MONTMORILLONITE
     Dates: start: 20230926
  14. PREDNISOLONE [Concomitant]
     Active Substance: PREDNISOLONE
     Dates: start: 20230926
  15. RAMOSETRON HYDROCHLORIDE [Concomitant]
     Active Substance: RAMOSETRON HYDROCHLORIDE
     Dates: start: 20230926
  16. TANTUM [Concomitant]
     Active Substance: BENZYDAMINE HYDROCHLORIDE
     Dates: start: 20230925
  17. HEPARIN [Concomitant]
     Active Substance: HEPARIN SODIUM
     Dates: start: 20230925
  18. GRANISETRON [Concomitant]
     Active Substance: GRANISETRON
     Dates: start: 20231004
  19. ASCORBIC ACID W/ERGOCALCIFEROL [Concomitant]
     Dates: start: 20231018
  20. CHROMIC CHLORIDE [Concomitant]
     Active Substance: CHROMIC CHLORIDE
     Dates: start: 20231106
  21. FILGRASTIM [Concomitant]
     Active Substance: FILGRASTIM
     Dates: start: 20231016, end: 20231016
  22. LIDOCAINE [Concomitant]
     Active Substance: LIDOCAINE
     Dosage: 1 PERCENT
     Dates: start: 20231019, end: 20231019
  23. MEPERIDINE [Concomitant]
     Active Substance: MEPERIDINE
     Dates: start: 20231114, end: 20231114
  24. CALCIUM POLYSTYRENE SULFONATE [Concomitant]
     Active Substance: CALCIUM POLYSTYRENE SULFONATE
     Dates: start: 20231106, end: 20231107
  25. VENITOL [Concomitant]
     Dates: start: 20231113, end: 20231123
  26. URSODIOL [Concomitant]
     Active Substance: URSODIOL
     Dates: start: 20231113, end: 20231120
  27. ZYPREXA [Concomitant]
     Active Substance: OLANZAPINE
     Dates: start: 20231019
  28. PIPERACILLIN SODIUM\TAZOBACTAM SODIUM [Concomitant]
     Active Substance: PIPERACILLIN SODIUM\TAZOBACTAM SODIUM
     Dates: start: 20231108, end: 20231114
  29. LEVOFLOXACIN [Concomitant]
     Active Substance: LEVOFLOXACIN
     Dates: start: 20231108, end: 20231114
  30. TAPOCIN [Concomitant]
     Dates: start: 20231109, end: 20231113
  31. MAGNESIUM W/POTASSIUM [Concomitant]
     Dates: start: 20231018
  32. CALCIUM\MAGNESIUM\ZINC [Concomitant]
     Active Substance: CALCIUM\MAGNESIUM\ZINC
     Dates: start: 20231019, end: 20231021
  33. EFLAPEGRASTIM [Concomitant]
     Active Substance: EFLAPEGRASTIM
     Dates: start: 20231017, end: 20231017
  34. ACETAMINOPHEN [Concomitant]
     Active Substance: ACETAMINOPHEN
     Dates: start: 20231108, end: 20231110
  35. PROPACETAMOL HYDROCHLORIDE [Concomitant]
     Active Substance: PROPACETAMOL HYDROCHLORIDE
     Dates: start: 20231109, end: 20231110
  36. FLUOROURACIL [Suspect]
     Active Substance: FLUOROURACIL
     Indication: Squamous cell carcinoma of head and neck
     Dosage: C1D1: CONTINUOUS INFUSION FOR 4 DAYS ON DAYS 1,2,3,4 OF EVERY 3 WEEKS CYCLE
     Route: 042
     Dates: start: 20231017, end: 20231021
  37. FLUOROURACIL [Suspect]
     Active Substance: FLUOROURACIL
     Indication: Squamous cell carcinoma of head and neck
     Dosage: C3D1
     Route: 042
     Dates: start: 20231107, end: 20231109

REACTIONS (1)
  - Blood creatinine increased [Recovering/Resolving]

NARRATIVE: CASE EVENT DATE: 20231109
